FAERS Safety Report 5302173-5 (Version None)
Quarter: 2007Q2

REPORT INFORMATION
  Report Type: 
  Country: None (occurrence: None)
  Receive Date: 20070419
  Receipt Date: 20070419
  Transmission Date: 20071010
  Serious: Yes (Other)
  Sender: FDA-Public Use
  Company Number: US-GLAXOSMITHKLINE-A0647722A

PATIENT
  Age: 78 Year
  Sex: Male

DRUGS (2)
  1. SUPER POLIGRIP ORIGINAL DENTURE ADHESIVE CREAM [Suspect]
     Indication: TOOTH DISORDER
  2. UNSPECIFIED MEDICATION [Concomitant]

REACTIONS (2)
  - HEPATIC NEOPLASM [None]
  - HEPATIC NEOPLASM MALIGNANT [None]
